FAERS Safety Report 9124001 (Version 1)
Quarter: 2013Q1

REPORT INFORMATION
  Report Type: Spontaneous
  Country: US (occurrence: US)
  Receive Date: 20130227
  Receipt Date: 20130227
  Transmission Date: 20140127
  Serious: No
  Sender: FDA-Public Use
  Company Number: US-TEVA-387771USA

PATIENT
  Age: 30 Year
  Sex: Female
  Weight: 68.1 kg

DRUGS (3)
  1. PLAN B ONE-STEP [Suspect]
     Indication: POST COITAL CONTRACEPTION
     Dosage: 1.5 MILLIGRAM DAILY;
     Route: 048
     Dates: start: 20130218, end: 20130218
  2. ANTIHYPERTENSIVE [Suspect]
     Indication: HYPERTENSION
  3. LOPRESSOR [Concomitant]
     Indication: HYPERTENSION

REACTIONS (1)
  - Vomiting [Recovered/Resolved]
